FAERS Safety Report 4705488-4 (Version None)
Quarter: 2005Q2

REPORT INFORMATION
  Report Type: 
  Country: None (occurrence: None)
  Receive Date: 20050630
  Receipt Date: 20050630
  Transmission Date: 20051028
  Serious: Yes (Hospitalization)
  Sender: FDA-Public Use
  Company Number: None

PATIENT
  Age: 71 Year
  Sex: Male
  Weight: 55.3 kg

DRUGS (10)
  1. LIDOCAINE 1% [Suspect]
     Dosage: 2CC, X 1 DOSE, EPIDURAL
     Route: 008
     Dates: start: 20040511, end: 20040511
  2. DEPO-MEDROL [Suspect]
     Dosage: 4CC, X 1 DOSE, EPIDURAL
     Route: 008
     Dates: start: 20040511, end: 20040511
  3. PRILOSEC [Concomitant]
  4. TRAMADOL HCL [Concomitant]
  5. METOPROLOL TARTRATE [Concomitant]
  6. LISINOPRIL [Concomitant]
  7. HYDROCHLOROTHIAZIDE [Concomitant]
  8. FELODIPINE [Concomitant]
  9. DIPHENHYDRAMINE [Concomitant]
  10. ACETAMINOPHEN [Concomitant]

REACTIONS (3)
  - ASTHENIA [None]
  - CONFUSIONAL STATE [None]
  - HYPOTENSION [None]
